FAERS Safety Report 5655835-4 (Version None)
Quarter: 2008Q1

REPORT INFORMATION
  Report Type: 
  Country: None (occurrence: None)
  Receive Date: 20080307
  Receipt Date: 20080227
  Transmission Date: 20080703
  Serious: Yes (Hospitalization, Other)
  Sender: FDA-Public Use
  Company Number: US-ABBOTT-08P-163-0439990-00

PATIENT
  Sex: Female
  Weight: 87.622 kg

DRUGS (2)
  1. HUMIRA [Suspect]
     Indication: RHEUMATOID ARTHRITIS
     Route: 058
     Dates: start: 20040101, end: 20080214
  2. HUMIRA [Suspect]

REACTIONS (2)
  - ATRIOVENTRICULAR BLOCK [None]
  - CARDIAC DISORDER [None]
